FAERS Safety Report 20919754 (Version 2)
Quarter: 2023Q1

REPORT INFORMATION
  Report Type: Report from Study
  Country: DE (occurrence: DE)
  Receive Date: 20220606
  Receipt Date: 20230117
  Transmission Date: 20230417
  Serious: Yes (Hospitalization)
  Sender: FDA-Public Use
  Company Number: DE-PFIZER INC-202200780810

PATIENT
  Age: 65 Year
  Sex: Female

DRUGS (5)
  1. XELJANZ [Suspect]
     Active Substance: TOFACITINIB CITRATE
     Dosage: 10 MG, 1X/DAY
     Dates: end: 20220113
  2. UNSPECIFIED INGREDIENT [Suspect]
     Active Substance: UNSPECIFIED INGREDIENT
     Dosage: NO DOSE GIVEN
  3. FILGOTINIB [Concomitant]
     Active Substance: FILGOTINIB
     Dosage: 200 MG, 1X/DAY
     Dates: start: 20220114
  4. OXYCODONE [Concomitant]
     Active Substance: OXYCODONE
  5. METAMIZOLE [Concomitant]
     Active Substance: METAMIZOLE

REACTIONS (1)
  - Breast cancer metastatic [Not Recovered/Not Resolved]

NARRATIVE: CASE EVENT DATE: 20210301
